FAERS Safety Report 5278029-3 (Version None)
Quarter: 2007Q1

REPORT INFORMATION
  Report Type: 
  Country: None (occurrence: None)
  Receive Date: 20070321
  Receipt Date: 20070305
  Transmission Date: 20070707
  Serious: Yes (Hospitalization)
  Sender: FDA-Public Use
  Company Number: 2007EU000561

PATIENT
  Age: 17 Year
  Sex: Female

DRUGS (4)
  1. TACROLIMUS [Suspect]
     Indication: RENAL TRANSPLANT
     Dates: end: 20060615
  2. MEDROL [Suspect]
     Dosage: ORAL
     Route: 048
     Dates: start: 20020615, end: 20060615
  3. SANDIMMUNE [Suspect]
     Dates: start: 20020615
  4. IMURAN [Suspect]
     Dates: start: 20020615, end: 20060615

REACTIONS (3)
  - FIBROADENOMA OF BREAST [None]
  - GYNAECOMASTIA [None]
  - TRANSPLANT REJECTION [None]
